FAERS Safety Report 14253513 (Version 2)
Quarter: 2018Q1

REPORT INFORMATION
  Report Type: Report from Study
  Country: US (occurrence: US)
  Receive Date: 20171206
  Receipt Date: 20180111
  Transmission Date: 20180508
  Serious: Yes (Other)
  Sender: FDA-Public Use
  Company Number: US-AMGEN-USASL2017179951

PATIENT
  Age: 65 Year
  Sex: Female

DRUGS (2)
  1. REPATHA [Suspect]
     Active Substance: EVOLOCUMAB
     Indication: HYPERCHOLESTEROLAEMIA
     Dosage: 140 MG, Q2WK
     Route: 058
  2. REPATHA [Suspect]
     Active Substance: EVOLOCUMAB
     Dosage: 140 MG, Q2WK
     Route: 058

REACTIONS (24)
  - Abdominal pain [Unknown]
  - Hepatic pain [Unknown]
  - Injection site rash [Unknown]
  - Headache [Unknown]
  - Oropharyngeal pain [Unknown]
  - Injection site warmth [Unknown]
  - Injection site swelling [Unknown]
  - Rhinorrhoea [Unknown]
  - Urine odour abnormal [Unknown]
  - Injection site vesicles [Unknown]
  - Swelling face [Unknown]
  - Injection site pain [Unknown]
  - Hunger [Unknown]
  - Irritability [Unknown]
  - Injection site erythema [Unknown]
  - Gastrointestinal disorder [Unknown]
  - Nausea [Unknown]
  - Rash pruritic [Unknown]
  - Dry skin [Unknown]
  - Dyspnoea [Unknown]
  - Injection site scar [Unknown]
  - Fatigue [Unknown]
  - Feeling abnormal [Unknown]
  - Anxiety [Unknown]

NARRATIVE: CASE EVENT DATE: 201711
